FAERS Safety Report 5498632-5 (Version None)
Quarter: 2007Q4

REPORT INFORMATION
  Report Type: 
  Country: None (occurrence: None)
  Receive Date: 20071024
  Receipt Date: 20071009
  Transmission Date: 20080405
  Serious: Yes (Hospitalization, Other)
  Sender: FDA-Public Use
  Company Number: 019745

PATIENT
  Age: 75 Year
  Sex: Male

DRUGS (13)
  1. WARFARIN SODIUM [Suspect]
     Indication: AORTIC VALVE REPLACEMENT
     Dosage: 7.5 MG (4 D/WK) + 5 MG (3 D/WK), ORAL
     Route: 048
  2. ACETYLSALICYLIC ACID SRT [Suspect]
     Dosage: 81 MG, QD, ORAL
     Route: 048
  3. OMEGA 3(FISH OIL) [Suspect]
     Dosage: 6 G, QD, ORAL
     Route: 048
  4. METFORMIN HCL [Concomitant]
  5. GLIPIZIDE [Concomitant]
  6. SIMVASTATIN [Concomitant]
  7. LEVOTHYROXINE SODIUM [Concomitant]
  8. MIGLITOL (MIGLITOL) [Concomitant]
  9. RAMIPRIL [Concomitant]
  10. FUROSEMIDE [Concomitant]
  11. POTASSIUM CHLORIDE [Concomitant]
  12. LORAZEPAM [Concomitant]
  13. IPRATROPIUM BROMIDE [Concomitant]

REACTIONS (8)
  - ACTIVATED PARTIAL THROMBOPLASTIN TIME PROLONGED [None]
  - BLOOD GLUCOSE INCREASED [None]
  - COMPLEX PARTIAL SEIZURES [None]
  - DRUG INTERACTION [None]
  - FALL [None]
  - INTERNATIONAL NORMALISED RATIO INCREASED [None]
  - SUBDURAL HAEMATOMA [None]
  - WHITE BLOOD CELL COUNT INCREASED [None]
